FAERS Safety Report 8334775-6 (Version None)
Quarter: 2012Q2

REPORT INFORMATION
  Report Type: 
  Country: None (occurrence: None)
  Receive Date: 20120503
  Receipt Date: 20120423
  Transmission Date: 20120825
  Serious: Yes (Hospitalization)
  Sender: FDA-Public Use
  Company Number: CA-ASTRAZENECA-2012SE26377

PATIENT
  Age: 53 Year
  Sex: Male
  Weight: 91.8 kg

DRUGS (12)
  1. AVANDAMET [Suspect]
     Route: 065
  2. GLICLAZIDE MR [Suspect]
     Route: 065
  3. NEXAVAR [Suspect]
     Indication: RENAL CELL CARCINOMA
     Route: 048
     Dates: start: 20091216
  4. CADUET [Concomitant]
  5. LEVEMIR [Suspect]
     Route: 065
  6. LISINOPRIL [Concomitant]
  7. METOPROLOL TARTRATE [Suspect]
     Route: 048
  8. ASPIRIN [Concomitant]
  9. AVALIDE [Concomitant]
  10. PLACEBO [Suspect]
     Route: 065
  11. SUTENT [Suspect]
     Indication: RENAL CELL CARCINOMA
     Route: 048
     Dates: start: 20091216
  12. JANUVIA [Suspect]
     Route: 065

REACTIONS (2)
  - HYPOGLYCAEMIA [None]
  - METABOLIC ACIDOSIS [None]
